FAERS Safety Report 4700211-1 (Version None)
Quarter: 2005Q2

REPORT INFORMATION
  Report Type: 
  Country: None (occurrence: None)
  Receive Date: 20050623
  Receipt Date: 20050616
  Transmission Date: 20051028
  Serious: Yes (Other)
  Sender: FDA-Public Use
  Company Number: 2005-05-0815

PATIENT
  Age: 12 Year
  Sex: Female

DRUGS (2)
  1. CLARITIN [Suspect]
     Indication: EYE PRURITUS
     Dosage: ONCE ORAL
     Route: 048
     Dates: start: 20050509, end: 20050509
  2. CLARITIN [Suspect]
     Indication: RHINORRHOEA
     Dosage: ONCE ORAL
     Route: 048
     Dates: start: 20050509, end: 20050509

REACTIONS (5)
  - DIZZINESS [None]
  - DYSPNOEA [None]
  - LOSS OF CONSCIOUSNESS [None]
  - NAUSEA [None]
  - VISION BLURRED [None]
